FAERS Safety Report 11360793 (Version 1)
Quarter: 2015Q3

REPORT INFORMATION
  Report Type: Spontaneous
  Country: AU (occurrence: AU)
  Receive Date: 20150810
  Receipt Date: 20150810
  Transmission Date: 20151125
  Serious: Yes (Other)
  Sender: FDA-Public Use
  Company Number: AU-ROCHE-1616236

PATIENT
  Age: 32 Year
  Sex: Female

DRUGS (4)
  1. ZELBORAF [Suspect]
     Active Substance: VEMURAFENIB
     Indication: METASTASES TO LUNG
     Route: 065
  2. IPILIMUMAB [Concomitant]
     Active Substance: IPILIMUMAB
  3. PEMBROLIZUMAB. [Concomitant]
     Active Substance: PEMBROLIZUMAB
  4. AVASTIN [Suspect]
     Active Substance: BEVACIZUMAB
     Indication: BRAIN OEDEMA
     Route: 065
     Dates: start: 201304

REACTIONS (14)
  - Abdominal pain [Unknown]
  - Adrenal insufficiency [Unknown]
  - Metastases to central nervous system [Unknown]
  - Urticaria [Unknown]
  - Hyperthyroidism [Unknown]
  - Off label use [Unknown]
  - Skin mass [Unknown]
  - Brain oedema [Unknown]
  - Hemiplegia [Unknown]
  - Autoimmune neutropenia [Unknown]
  - Peritoneal disorder [Unknown]
  - Confusional state [Unknown]
  - Nausea [Unknown]
  - Radiation necrosis [Unknown]
